FAERS Safety Report 15933329 (Version 2)
Quarter: 2019Q1

REPORT INFORMATION
  Report Type: Spontaneous
  Country: FR (occurrence: FR)
  Receive Date: 20190207
  Receipt Date: 20190320
  Transmission Date: 20190417
  Serious: Yes (Other)
  Sender: FDA-Public Use
  Company Number: FR-ALLERGAN-1905202US

PATIENT
  Sex: Male

DRUGS (10)
  1. OZURDEX [Suspect]
     Active Substance: DEXAMETHASONE
     Dosage: 0.7 MG, SINGLE
     Route: 031
     Dates: start: 20160105, end: 20160105
  2. RAMIPRIL. [Concomitant]
     Active Substance: RAMIPRIL
  3. METFORMINE [Concomitant]
     Active Substance: METFORMIN HYDROCHLORIDE
  4. KARDEGIC [Concomitant]
     Active Substance: ASPIRIN DL-LYSINE
  5. CARDENTIEL [Concomitant]
  6. OZURDEX [Suspect]
     Active Substance: DEXAMETHASONE
     Dosage: 0.7 MG, SINGLE
     Route: 031
     Dates: start: 20170112, end: 20170112
  7. ATORVASTATINE [Concomitant]
     Active Substance: ATORVASTATIN
  8. ISOPHANE INSULIN [Concomitant]
     Active Substance: INSULIN NOS
  9. OZURDEX [Suspect]
     Active Substance: DEXAMETHASONE
     Indication: DIABETIC RETINAL OEDEMA
     Dosage: 0.7 MG, SINGLE
     Route: 031
     Dates: start: 20170706, end: 20170706
  10. DIAMICRON [Concomitant]
     Active Substance: GLICLAZIDE

REACTIONS (13)
  - Retinal vascular disorder [Unknown]
  - Macular oedema [Unknown]
  - Ocular hypertension [Unknown]
  - Ocular hypertension [Unknown]
  - Cataract subcapsular [Unknown]
  - Macular oedema [Recovered/Resolved]
  - Cataract cortical [Unknown]
  - Ulcerative keratitis [Unknown]
  - Cataract subcapsular [Recovered/Resolved]
  - Retinal haemorrhage [Not Recovered/Not Resolved]
  - Macular fibrosis [Not Recovered/Not Resolved]
  - Hypertonia [Recovered/Resolved]
  - Macular oedema [Recovered/Resolved]

NARRATIVE: CASE EVENT DATE: 20160106
